FAERS Safety Report 6484608-8 (Version None)
Quarter: 2009Q4

REPORT INFORMATION
  Report Type: 
  Country: None (occurrence: None)
  Receive Date: 20091209
  Receipt Date: 20091130
  Transmission Date: 20100525
  Serious: Yes (Other)
  Sender: FDA-Public Use
  Company Number: ES-ABBOTT-09P-144-0611427-00

PATIENT
  Age: 83 Year
  Sex: Female

DRUGS (2)
  1. KLACID IV [Suspect]
     Indication: PNEUMONIA BACTERIAL
     Route: 042
     Dates: start: 20050121, end: 20050131
  2. ROCEFALIN [Suspect]
     Indication: PNEUMONIA BACTERIAL
     Route: 042
     Dates: start: 20050121, end: 20050131

REACTIONS (3)
  - FUNGAL INFECTION [None]
  - INJECTION SITE REACTION [None]
  - THROMBOPHLEBITIS SUPERFICIAL [None]
